FAERS Safety Report 7968011-7 (Version None)
Quarter: 2011Q4

REPORT INFORMATION
  Report Type: 
  Country: None (occurrence: None)
  Receive Date: 20111209
  Receipt Date: 20111130
  Transmission Date: 20120403
  Serious: Yes (Hospitalization, Other)
  Sender: FDA-Public Use
  Company Number: MX-SANOFI-AVENTIS-2011SA080490

PATIENT
  Age: 69 Year
  Sex: Female
  Weight: 60 kg

DRUGS (5)
  1. LANTUS [Suspect]
     Route: 058
     Dates: start: 20060101
  2. ZYPREXA [Concomitant]
     Indication: DEPRESSION
     Route: 048
     Dates: start: 20110901
  3. ADALAT CC [Concomitant]
     Route: 048
     Dates: start: 20090101
  4. FLUNARIZINE [Concomitant]
     Indication: BRAIN STEM STROKE
     Route: 048
     Dates: start: 20010101
  5. CARBAMAZEPINE [Concomitant]
     Indication: DEPRESSION
     Route: 048
     Dates: start: 20110901

REACTIONS (6)
  - HYPERGLYCAEMIA [None]
  - DIARRHOEA [None]
  - MUSCLE RIGIDITY [None]
  - DECREASED APPETITE [None]
  - HYPONATRAEMIA [None]
  - MAJOR DEPRESSION [None]
